FAERS Safety Report 25538966 (Version 4)
Quarter: 2025Q3

REPORT INFORMATION
  Report Type: Spontaneous
  Country: EU (occurrence: EU)
  Receive Date: 20250710
  Receipt Date: 20250904
  Transmission Date: 20251021
  Serious: No
  Sender: PFIZER
  Company Number: EU-PFIZER INC-PV202500082159

PATIENT
  Age: 1 Year
  Sex: Male
  Weight: 6.5 kg

DRUGS (4)
  1. GENOTROPIN [Suspect]
     Active Substance: SOMATROPIN
     Indication: Hypopituitarism
     Route: 058
     Dates: start: 202405
  2. GENOTROPIN [Suspect]
     Active Substance: SOMATROPIN
     Route: 058
     Dates: start: 202405
  3. HYDRACORT [HYDROCORTISONE] [Concomitant]
     Indication: Hypopituitarism
     Dosage: 1 DF, DAILY
  4. ACCU THYROX [Concomitant]
     Indication: Hypopituitarism
     Dosage: 1 DF, DAILY

REACTIONS (2)
  - Device mechanical issue [Recovered/Resolved]
  - Device issue [Recovered/Resolved]

NARRATIVE: CASE EVENT DATE: 20250707
